FAERS Safety Report 13077649 (Version 2)
Quarter: 2017Q1

REPORT INFORMATION
  Report Type: Report from Study
  Country: None (occurrence: SE)
  Receive Date: 20161231
  Receipt Date: 20170102
  Transmission Date: 20170428
  Serious: Yes (Hospitalization)
  Sender: FDA-Public Use
  Company Number: SE-ABBVIE-16K-150-1819383-00

PATIENT
  Age: 65 Year
  Sex: Male

DRUGS (4)
  1. SINEMET [Concomitant]
     Active Substance: CARBIDOPA\LEVODOPA
     Indication: PRODUCT USED FOR UNKNOWN INDICATION
     Dosage: 25MG/100MG
  2. DUODOPA [Suspect]
     Active Substance: CARBIDOPA\LEVODOPA
     Indication: PARKINSON^S DISEASE
     Route: 050
     Dates: start: 20110105, end: 20110119
  3. VITAMIN D [Suspect]
     Active Substance: CHOLECALCIFEROL
     Indication: PRODUCT USED FOR UNKNOWN INDICATION
     Route: 065
  4. DUODOPA [Suspect]
     Active Substance: CARBIDOPA\LEVODOPA
     Route: 050
     Dates: start: 20110119

REACTIONS (10)
  - Stoma site infection [Recovered/Resolved]
  - Device kink [Unknown]
  - Stoma site reaction [Not Recovered/Not Resolved]
  - Stoma site discharge [Recovered/Resolved]
  - Hypoaesthesia [Recovered/Resolved]
  - Stoma site erythema [Not Recovered/Not Resolved]
  - Purulent discharge [Recovered/Resolved]
  - Incorrect route of drug administration [Recovered/Resolved]
  - Stoma site discharge [Recovered/Resolved]
  - Stoma site odour [Recovered/Resolved]

NARRATIVE: CASE EVENT DATE: 201508
